FAERS Safety Report 11239755 (Version 3)
Quarter: 2015Q4

REPORT INFORMATION
  Report Type: Spontaneous
  Country: GB (occurrence: GB)
  Receive Date: 20150706
  Receipt Date: 20151011
  Transmission Date: 20160304
  Serious: Yes (Life-Threatening, Hospitalization, Other)
  Sender: FDA-Public Use
  Company Number: PHFR2015GB005060

PATIENT
  Age: 76 Year
  Sex: Female

DRUGS (7)
  1. TASIGNA [Suspect]
     Active Substance: NILOTINIB
     Indication: CHRONIC MYELOID LEUKAEMIA
     Dosage: 300 MG, UNK
     Route: 048
     Dates: start: 201208
  2. GLYCERYL TRINITRATE [Concomitant]
     Active Substance: NITROGLYCERIN
     Indication: CORONARY ARTERY DISEASE
     Dosage: 500 UG, 1-2 DISSOLVED UNDER THE TONGUE WHEN REQUIRED
     Route: 060
     Dates: start: 20131031, end: 20150626
  3. ATORVASTATIN [Concomitant]
     Active Substance: ATORVASTATIN
     Indication: HYPERLIPIDAEMIA
     Dosage: 40 MG, QD (ONE TABLET AT NIGHT)
     Route: 065
     Dates: start: 20140923, end: 20150626
  4. OMEPRAZOLE. [Concomitant]
     Active Substance: OMEPRAZOLE
     Indication: OESOPHAGITIS
  5. OMEPRAZOLE. [Concomitant]
     Active Substance: OMEPRAZOLE
     Indication: GASTROOESOPHAGEAL REFLUX DISEASE
     Dosage: 10 MG, QD (ONE EVERY MORNING)
     Route: 065
     Dates: start: 20150318, end: 20150626
  6. RAMIPRIL. [Concomitant]
     Active Substance: RAMIPRIL
     Indication: ACUTE MYOCARDIAL INFARCTION
     Dosage: 5 MG, QD (ONE CAPSULE AT NIGHT)
     Route: 065
     Dates: start: 20140923, end: 20150505
  7. ATENOLOL. [Concomitant]
     Active Substance: ATENOLOL
     Indication: ACUTE MYOCARDIAL INFARCTION
     Dosage: 50 MG, QD
     Route: 065
     Dates: start: 20140923, end: 20150626

REACTIONS (15)
  - Acute coronary syndrome [Recovered/Resolved]
  - Chronic lymphocytic leukaemia [Recovered/Resolved]
  - Chronic kidney disease [Unknown]
  - Chest pain [Recovered/Resolved]
  - Arrhythmia [Recovered/Resolved with Sequelae]
  - Apparent death [Unknown]
  - Angina pectoris [Recovered/Resolved]
  - Vomiting [Recovered/Resolved]
  - Atrial fibrillation [Recovered/Resolved with Sequelae]
  - Troponin increased [Recovered/Resolved]
  - Glomerular filtration rate decreased [Recovered/Resolved]
  - Nausea [Recovered/Resolved]
  - Hypercoagulation [Recovered/Resolved]
  - Malaise [Recovered/Resolved]
  - Abdominal discomfort [Recovered/Resolved]

NARRATIVE: CASE EVENT DATE: 20150624
